FAERS Safety Report 22309077 (Version 1)
Quarter: 2023Q2

REPORT INFORMATION
  Report Type: Report from Study
  Country: RU (occurrence: RU)
  Receive Date: 20230511
  Receipt Date: 20230511
  Transmission Date: 20230721
  Serious: Yes (Other)
  Sender: FDA-Public Use
  Company Number: RU-002147023-NVSC2021RU315386

PATIENT
  Sex: Female

DRUGS (1)
  1. TAFINLAR [Suspect]
     Active Substance: DABRAFENIB MESYLATE
     Indication: Product used for unknown indication
     Dosage: UNK
     Route: 065

REACTIONS (8)
  - Electrocardiogram QRS complex prolonged [Unknown]
  - Glycosylated haemoglobin increased [Unknown]
  - Gamma-glutamyltransferase increased [Unknown]
  - Basophil count increased [Unknown]
  - Red blood cell sedimentation rate increased [Unknown]
  - Lymphocyte count increased [Unknown]
  - Neutrophil count decreased [Unknown]
  - Platelet count increased [Unknown]
